FAERS Safety Report 7873002-0 (Version None)
Quarter: 2011Q4

REPORT INFORMATION
  Report Type: 
  Country: None (occurrence: None)
  Receive Date: 20111030
  Receipt Date: 20110426
  Transmission Date: 20120403
  Serious: No
  Sender: FDA-Public Use
  Company Number: US-AMGEN-USASP2011006667

PATIENT
  Age: 57 Year
  Sex: Female

DRUGS (2)
  1. ENBREL [Suspect]
     Dosage: 50 MG, QWK
     Dates: start: 20090924
  2. ENBREL [Suspect]
     Indication: RHEUMATOID ARTHRITIS
     Dosage: 50 MG, QWK
     Dates: start: 20091101

REACTIONS (6)
  - RHEUMATOID ARTHRITIS [None]
  - INJECTION SITE PAIN [None]
  - ARTHRALGIA [None]
  - RHEUMATOID NODULE [None]
  - INJECTION SITE SWELLING [None]
  - JOINT DESTRUCTION [None]
